FAERS Safety Report 18581192 (Version 2)
Quarter: 2022Q4

REPORT INFORMATION
  Report Type: Spontaneous
  Country: CA (occurrence: CA)
  Receive Date: 20201204
  Receipt Date: 20221103
  Transmission Date: 20230112
  Serious: Yes (Other)
  Sender: FDA-Public Use
  Company Number: CA-DSJP-DSU-2020-136677

PATIENT
  Age: 53 Year
  Sex: Male
  Weight: 113 kg

DRUGS (15)
  1. OLMESARTAN MEDOXOMIL [Suspect]
     Active Substance: OLMESARTAN MEDOXOMIL
     Indication: Hypertension
     Dosage: 1 EVERY 1 DAY
     Route: 065
  2. OLMESARTAN MEDOXOMIL [Suspect]
     Active Substance: OLMESARTAN MEDOXOMIL
     Dosage: UNK
     Route: 048
  3. CONTRAVE [Suspect]
     Active Substance: BUPROPION HYDROCHLORIDE\NALTREXONE HYDROCHLORIDE
     Indication: Weight control
     Dosage: UNK
     Route: 048
  4. CONTRAVE [Suspect]
     Active Substance: BUPROPION HYDROCHLORIDE\NALTREXONE HYDROCHLORIDE
     Dosage: 2 EVERY 1 DAYS
     Route: 048
  5. CONTRAVE [Suspect]
     Active Substance: BUPROPION HYDROCHLORIDE\NALTREXONE HYDROCHLORIDE
     Dosage: 1 DOSAGE FORM, 2 EVERY 1 DAYS
     Route: 048
  6. CONTRAVE [Suspect]
     Active Substance: BUPROPION HYDROCHLORIDE\NALTREXONE HYDROCHLORIDE
     Dosage: 1 DOSAGE FORM, 1 EVERY 1 DAYS
     Route: 048
  7. CONTRAVE [Suspect]
     Active Substance: BUPROPION HYDROCHLORIDE\NALTREXONE HYDROCHLORIDE
     Dosage: 2 DOSAGE FORM, 2 EVERY 1 DAYS
     Route: 048
  8. CONTRAVE [Suspect]
     Active Substance: BUPROPION HYDROCHLORIDE\NALTREXONE HYDROCHLORIDE
     Dosage: UNK, ONCE EVERY 3 WK
     Route: 048
  9. CONTRAVE [Suspect]
     Active Substance: BUPROPION HYDROCHLORIDE\NALTREXONE HYDROCHLORIDE
     Dosage: 1 DF, ONCE EVERY 1 WK
     Route: 048
  10. ALCOHOL [Suspect]
     Active Substance: ALCOHOL
     Indication: Product used for unknown indication
     Dosage: UNK
     Route: 065
  11. VENLAFAXINE HYDROCHLORIDE [Suspect]
     Active Substance: VENLAFAXINE HYDROCHLORIDE
     Indication: Depression
     Dosage: 1 EVERY 1 DAY
     Route: 048
  12. VENLAFAXINE HYDROCHLORIDE [Suspect]
     Active Substance: VENLAFAXINE HYDROCHLORIDE
     Dosage: UNK
     Route: 048
  13. ALLOPURINOL [Concomitant]
     Active Substance: ALLOPURINOL
     Indication: Gout
     Dosage: 1 DF, QD
     Route: 048
  14. PANTOPRAZOLE [Concomitant]
     Active Substance: PANTOPRAZOLE
     Indication: Gastrooesophageal reflux disease
     Dosage: 1 EVERY 1 DAYS
     Route: 048
  15. TELMISARTAN [Concomitant]
     Active Substance: TELMISARTAN
     Indication: Hypertension
     Dosage: 1 EVERY 1 DAYS
     Route: 048

REACTIONS (12)
  - Blood pressure decreased [Not Recovered/Not Resolved]
  - Blood pressure abnormal [Not Recovered/Not Resolved]
  - Dizziness [Not Recovered/Not Resolved]
  - Blood pressure increased [Not Recovered/Not Resolved]
  - Erectile dysfunction [Not Recovered/Not Resolved]
  - Gout [Not Recovered/Not Resolved]
  - Dry mouth [Not Recovered/Not Resolved]
  - Hangover [Not Recovered/Not Resolved]
  - Memory impairment [Not Recovered/Not Resolved]
  - Therapy cessation [Not Recovered/Not Resolved]
  - Patient dissatisfaction with treatment [Not Recovered/Not Resolved]
  - Treatment noncompliance [Not Recovered/Not Resolved]
